FAERS Safety Report 5179036-1 (Version None)
Quarter: 2006Q4

REPORT INFORMATION
  Report Type: 
  Country: None (occurrence: None)
  Receive Date: 20061214
  Receipt Date: 20061214
  Transmission Date: 20070319
  Serious: Yes (Disabling, Other)
  Sender: FDA-Public Use
  Company Number: None

PATIENT
  Age: 35 Year
  Sex: Female
  Weight: 113.3993 kg

DRUGS (1)
  1. TRIAMTERENE AND HYDROCHLOROTHIAZIDE [Suspect]
     Indication: HYPERTENSION
     Dosage: HALF OF TABLET PER DAY PO
     Route: 048
     Dates: start: 19960101, end: 20061213

REACTIONS (8)
  - ARTHRALGIA [None]
  - EAR CONGESTION [None]
  - HUNGER [None]
  - INFECTION [None]
  - MYALGIA [None]
  - NAUSEA [None]
  - SINUS CONGESTION [None]
  - TENDON DISORDER [None]
